FAERS Safety Report 13759555 (Version 2)
Quarter: 2017Q3

REPORT INFORMATION
  Report Type: Spontaneous
  Country: CH (occurrence: CH)
  Receive Date: 20170717
  Receipt Date: 20170821
  Transmission Date: 20171127
  Serious: Yes (Disabling, Other)
  Sender: FDA-Public Use
  Company Number: CH-AMGEN-CHESP2017105393

PATIENT
  Age: 73 Year
  Sex: Male

DRUGS (1)
  1. PROLIA [Suspect]
     Active Substance: DENOSUMAB
     Indication: PRODUCT USED FOR UNKNOWN INDICATION
     Dosage: UNK
     Route: 065

REACTIONS (11)
  - Pain [Recovering/Resolving]
  - Skin disorder [Recovering/Resolving]
  - Alopecia [Recovering/Resolving]
  - Sleep disorder [Recovered/Resolved]
  - Cystitis [Recovering/Resolving]
  - Erythema [Recovering/Resolving]
  - Nail disorder [Recovering/Resolving]
  - Libido increased [Unknown]
  - Hypersensitivity [Recovering/Resolving]
  - Palpitations [Recovering/Resolving]
  - Rash [Recovering/Resolving]

NARRATIVE: CASE EVENT DATE: 2017
